FAERS Safety Report 5297463-9 (Version None)
Quarter: 2007Q2

REPORT INFORMATION
  Report Type: 
  Country: None (occurrence: None)
  Receive Date: 20070416
  Receipt Date: 20070118
  Transmission Date: 20071010
  Serious: No
  Sender: FDA-Public Use
  Company Number: US-GLAXOSMITHKLINE-A0636375A

PATIENT
  Sex: Male

DRUGS (1)
  1. COMPAZINE [Suspect]
     Indication: REGURGITATION
     Route: 065
     Dates: start: 19980101

REACTIONS (3)
  - DYSTONIA [None]
  - HYPERSENSITIVITY [None]
  - THERAPEUTIC RESPONSE UNEXPECTED [None]
